FAERS Safety Report 7980389-7 (Version None)
Quarter: 2011Q4

REPORT INFORMATION
  Report Type: 
  Country: None (occurrence: None)
  Receive Date: 20111214
  Receipt Date: 20111206
  Transmission Date: 20120403
  Serious: Yes (Other)
  Sender: FDA-Public Use
  Company Number: US-BAXTER-2011BH038780

PATIENT
  Age: 11 Year
  Sex: Female

DRUGS (4)
  1. ASPIRIN [Suspect]
     Indication: ANTICOAGULANT THERAPY
     Route: 065
  2. DIPYRIDAMOLE [Suspect]
     Indication: ANTICOAGULANT THERAPY
     Route: 065
  3. HEPARIN SODIUM 1,000 UNITS AND SODIUM CHLORIDE 0.9% [Suspect]
     Indication: ANTICOAGULANT THERAPY
     Route: 065
  4. PENTOXIFYLLINE [Suspect]
     Indication: ANTICOAGULANT THERAPY
     Route: 048

REACTIONS (2)
  - GASTROINTESTINAL HAEMORRHAGE [None]
  - CARDIAC TAMPONADE [None]
